FAERS Safety Report 8483493-2 (Version None)
Quarter: 2012Q3

REPORT INFORMATION
  Report Type: 
  Country: None (occurrence: None)
  Receive Date: 20120702
  Receipt Date: 20120622
  Transmission Date: 20120928
  Serious: Yes (Other)
  Sender: FDA-Public Use
  Company Number: US-ABBOTT-12P-163-0949275-00

PATIENT
  Sex: Female
  Weight: 45.854 kg

DRUGS (5)
  1. ANTIBIOTICS [Suspect]
     Indication: COLITIS MICROSCOPIC
     Dates: start: 20070101
  2. SYNTHROID [Suspect]
     Indication: HYPOTHYROIDISM
     Dates: end: 20120101
  3. ATENOLOL [Concomitant]
     Indication: PRODUCT USED FOR UNKNOWN INDICATION
     Dosage: DAILY
     Route: 048
  4. LEVOXYL [Suspect]
     Indication: HYPOTHYROIDISM
     Dates: start: 20120101, end: 20120101
  5. LEVOTHYROXINE SODIUM [Suspect]
     Indication: HYPOTHYROIDISM
     Dates: start: 20120101

REACTIONS (15)
  - DYSSTASIA [None]
  - ABASIA [None]
  - SURGICAL FAILURE [None]
  - PRECANCEROUS MUCOSAL LESION [None]
  - VITAMIN D DECREASED [None]
  - WEIGHT DECREASED [None]
  - UNEVALUABLE EVENT [None]
  - VITAMIN B12 DECREASED [None]
  - INCONTINENCE [None]
  - FALL [None]
  - HIP FRACTURE [None]
  - COLITIS MICROSCOPIC [None]
  - DIARRHOEA [None]
  - BLOOD CHOLESTEROL INCREASED [None]
  - AUTOIMMUNE DISORDER [None]
